FAERS Safety Report 24379150 (Version 1)
Quarter: 2024Q3

REPORT INFORMATION
  Report Type: Spontaneous
  Country: DE (occurrence: DE)
  Receive Date: 20240930
  Receipt Date: 20240930
  Transmission Date: 20241016
  Serious: Yes (Other)
  Sender: PFIZER
  Company Number: DE-BAXTER-2020BAX005545

PATIENT
  Age: 81 Year
  Sex: Male

DRUGS (16)
  1. VINCRISTINE SULFATE [Suspect]
     Active Substance: VINCRISTINE SULFATE
     Indication: Diffuse large B-cell lymphoma
     Dosage: 1.4 MG/M2, MONTHLY (MODIFIED R-CHOP)
     Dates: start: 2007
  2. VINCRISTINE SULFATE [Suspect]
     Active Substance: VINCRISTINE SULFATE
     Dosage: 4 COURSES OF MODIFIED R-CHOP IN 75% DOSE
  3. VINCRISTINE SULFATE [Suspect]
     Active Substance: VINCRISTINE SULFATE
     Dosage: 1.4 MG/M2 (ANOTHER COURSE OF MODIFIED R-CHOP IN 100% DOSING)
  4. DOXORUBICIN HYDROCHLORIDE [Suspect]
     Active Substance: DOXORUBICIN HYDROCHLORIDE
     Indication: Diffuse large B-cell lymphoma
     Dosage: 20 MG/M2, MONTHLY (MODIFIED R-CHOP)
     Dates: start: 2007
  5. DOXORUBICIN HYDROCHLORIDE [Suspect]
     Active Substance: DOXORUBICIN HYDROCHLORIDE
     Dosage: 4 COURSES OF MODIFIED R-CHOP IN 75% DOSE
  6. DOXORUBICIN HYDROCHLORIDE [Suspect]
     Active Substance: DOXORUBICIN HYDROCHLORIDE
     Dosage: 20 MG/M2 (ANOTHER COURSE OF MODIFIED R-CHOP IN 100% DOSING)
  7. RITUXIMAB [Suspect]
     Active Substance: RITUXIMAB
     Indication: Diffuse large B-cell lymphoma
     Dosage: 375 MG/M2, MONTHLY (MODIFIED R-CHOP)
     Dates: start: 2007
  8. RITUXIMAB [Suspect]
     Active Substance: RITUXIMAB
     Dosage: 1 CYCLE OF A MAINTENANCE MONOTHERAPY
  9. RITUXIMAB [Suspect]
     Active Substance: RITUXIMAB
     Dosage: 4 COURSES OF MODIFIED R-CHOP IN 75% DOSE
  10. RITUXIMAB [Suspect]
     Active Substance: RITUXIMAB
     Dosage: 375 MG/M2 (ANOTHER COURSE OF MODIFIED R-CHOP IN 100% DOSING)
  11. CYCLOPHOSPHAMIDE [Suspect]
     Active Substance: CYCLOPHOSPHAMIDE
     Indication: Diffuse large B-cell lymphoma
     Dosage: 750 MG/M2, MONTHLY (MODIFIED R-CHOP)
     Dates: start: 2007
  12. CYCLOPHOSPHAMIDE [Suspect]
     Active Substance: CYCLOPHOSPHAMIDE
     Dosage: 4 COURSES OF MODIFIED R-CHOP IN 75% DOSE
  13. CYCLOPHOSPHAMIDE [Suspect]
     Active Substance: CYCLOPHOSPHAMIDE
     Dosage: 750 MG/M2 (ANOTHER COURSE OF MODIFIED R-CHOP IN 100% DOSING)
  14. PREDNISOLONE [Suspect]
     Active Substance: PREDNISOLONE
     Indication: Diffuse large B-cell lymphoma
     Dosage: 100 MG, MONTHLY (MODIFIED R-CHOP)
     Dates: start: 2007
  15. PREDNISOLONE [Suspect]
     Active Substance: PREDNISOLONE
     Dosage: 4 COURSES OF MODIFIED R-CHOP IN 75% DOSE
  16. PREDNISOLONE [Suspect]
     Active Substance: PREDNISOLONE
     Dosage: 100 MG (ANOTHER COURSE OF MODIFIED R-CHOP IN 100% DOSING)

REACTIONS (6)
  - Leukopenia [Unknown]
  - Thrombosis [Unknown]
  - Dizziness [Unknown]
  - Extravasation [Unknown]
  - Agitation [Unknown]
  - Headache [Unknown]
